FAERS Safety Report 23631867 (Version 1)
Quarter: 2024Q1

REPORT INFORMATION
  Report Type: Spontaneous
  Country: US (occurrence: None)
  Receive Date: 20240313
  Receipt Date: 20240313
  Transmission Date: 20240410
  Serious: Yes (Life-Threatening, Hospitalization)
  Sender: FDA-Public Use
  Company Number: None

PATIENT
  Age: 34 Year
  Sex: Male
  Weight: 112.5 kg

DRUGS (2)
  1. CANNABIDIOL\CANNABIS SATIVA SEED OIL [Suspect]
     Active Substance: CANNABIDIOL\CANNABIS SATIVA SEED OIL
     Dates: start: 20221107, end: 20230505
  2. .DELTA.8-TETRAHYDROCANNABINOL\HERBALS [Concomitant]
     Active Substance: .DELTA.8-TETRAHYDROCANNABINOL\HERBALS

REACTIONS (5)
  - Mood swings [None]
  - Insomnia [None]
  - Mania [None]
  - Depression [None]
  - Bipolar disorder [None]

NARRATIVE: CASE EVENT DATE: 20230326
